FAERS Safety Report 20815664 (Version 1)
Quarter: 2022Q2

REPORT INFORMATION
  Report Type: Spontaneous
  Country: US (occurrence: US)
  Receive Date: 20220511
  Receipt Date: 20220511
  Transmission Date: 20220720
  Serious: No
  Sender: FDA-Public Use
  Company Number: US-PFIZER INC-202101484555

PATIENT
  Age: 88 Year

DRUGS (1)
  1. PHENYTOIN SODIUM [Suspect]
     Active Substance: PHENYTOIN SODIUM
     Indication: Seizure
     Dosage: 100 MG, 3X/DAY

REACTIONS (5)
  - Feeling abnormal [Unknown]
  - Vitamin B12 decreased [Unknown]
  - Asthenia [Unknown]
  - Weight decreased [Unknown]
  - Product dispensing error [Unknown]
